FAERS Safety Report 8727790 (Version 2)
Quarter: 2012Q4

REPORT INFORMATION
  Report Type: 
  Country: US (occurrence: US)
  Receive Date: 20120816
  Receipt Date: 20120911
  Transmission Date: 20130627
  Serious: No
  Sender: FDA-Public Use
  Company Number: US-PFIZER INC-2012199064

PATIENT
  Age: 65 Year
  Sex: Female
  Weight: 99.77 kg

DRUGS (3)
  1. XANAX [Suspect]
     Indication: SLEEP DISORDER
     Dosage: 0.5 mg, 1x/day
     Route: 048
  2. XANAX [Suspect]
     Indication: INSOMNIA
     Dosage: 0.5 mg, 1x/day
     Route: 048
  3. VENLAFAXINE [Concomitant]
     Indication: DEPRESSION
     Dosage: UNK

REACTIONS (6)
  - Suspected counterfeit product [Unknown]
  - Drug screen negative [Unknown]
  - Blood cholesterol increased [Unknown]
  - Muscle spasms [Unknown]
  - Drug ineffective [Recovered/Resolved]
  - Insomnia [Unknown]
